FAERS Safety Report 18522437 (Version 1)
Quarter: 2020Q4

REPORT INFORMATION
  Report Type: Spontaneous
  Country: US (occurrence: US)
  Receive Date: 20201119
  Receipt Date: 20201119
  Transmission Date: 20210114
  Serious: Yes (Life-Threatening, Other)
  Sender: FDA-Public Use
  Company Number: US-TAKEDA-2020TJP024332

PATIENT
  Age: 44 Year
  Sex: Female

DRUGS (2)
  1. ROCURONIUM [Suspect]
     Active Substance: ROCURONIUM BROMIDE
     Indication: INDUCTION OF ANAESTHESIA
     Dosage: UNK
     Route: 065
  2. PROPOFOL. [Suspect]
     Active Substance: PROPOFOL
     Indication: INDUCTION OF ANAESTHESIA
     Dosage: UNK
     Route: 065

REACTIONS (6)
  - Abdominal compartment syndrome [Unknown]
  - Cardiac arrest [Unknown]
  - Coronary artery embolism [Unknown]
  - Disseminated intravascular coagulation [Unknown]
  - Stress cardiomyopathy [Unknown]
  - Pulmonary embolism [Unknown]
